FAERS Safety Report 23356233 (Version 3)
Quarter: 2024Q1

REPORT INFORMATION
  Report Type: Spontaneous
  Country: US (occurrence: US)
  Receive Date: 20240102
  Receipt Date: 20240212
  Transmission Date: 20240410
  Serious: No
  Sender: FDA-Public Use
  Company Number: US-JNJFOC-20231272608

PATIENT
  Age: 59 Year
  Sex: Female

DRUGS (1)
  1. BENADRYL [Suspect]
     Active Substance: DIPHENHYDRAMINE HYDROCHLORIDE
     Indication: Product used for unknown indication
     Dosage: CUT THE BENADRYL DOSE IN HALF
     Route: 065
     Dates: start: 20231031

REACTIONS (1)
  - Somnolence [Unknown]

NARRATIVE: CASE EVENT DATE: 20231031
